FAERS Safety Report 12526518 (Version 1)
Quarter: 2016Q3

REPORT INFORMATION
  Report Type: Spontaneous
  Country: BR (occurrence: BR)
  Receive Date: 20160705
  Receipt Date: 20160705
  Transmission Date: 20161109
  Serious: Yes (Other)
  Sender: FDA-Public Use
  Company Number: PHHY2016BR083785

PATIENT
  Sex: Female
  Weight: 64 kg

DRUGS (7)
  1. MOTILIUM//DOMPERIDONE MALEATE [Concomitant]
     Indication: PRODUCT USED FOR UNKNOWN INDICATION
     Dosage: 2 DF, QD
     Route: 048
     Dates: start: 2011
  2. PANTOPRAZOLE [Concomitant]
     Active Substance: PANTOPRAZOLE SODIUM
     Indication: PRODUCT USED FOR UNKNOWN INDICATION
     Dosage: 1 DF, QD
     Route: 048
     Dates: start: 2011
  3. EXELON PATCH [Suspect]
     Active Substance: RIVASTIGMINE
     Indication: AMNESIA
     Dosage: 4.6 MG (9 MG/ 5 CM2 PATCH), QD
     Route: 062
  4. EXELON PATCH [Suspect]
     Active Substance: RIVASTIGMINE
     Dosage: 4.6 MG (9 MG/ 5 CM2 PATCH), QD
     Route: 062
  5. EXELON PATCH [Suspect]
     Active Substance: RIVASTIGMINE
     Dosage: 2 DF (PATCHES) (PATCH: 9 MG/5 CM2, 30 PATCHES), QD
     Route: 062
  6. VYTORIN [Concomitant]
     Active Substance: EZETIMIBE\SIMVASTATIN
     Indication: PRODUCT USED FOR UNKNOWN INDICATION
     Dosage: 1 DF, EVERY 3 DAYS
     Route: 048
     Dates: start: 2011
  7. CLOPIDOGREL [Concomitant]
     Active Substance: CLOPIDOGREL BISULFATE
     Indication: ISCHAEMIA
     Dosage: 1 DF, QD
     Route: 048
     Dates: start: 2011

REACTIONS (10)
  - Product use issue [Unknown]
  - Concomitant disease aggravated [Recovered/Resolved]
  - Decreased appetite [Not Recovered/Not Resolved]
  - Drug administration error [Unknown]
  - Malaise [Unknown]
  - Hypersomnia [Recovered/Resolved]
  - Depression [Unknown]
  - Depressed mood [Not Recovered/Not Resolved]
  - Gait disturbance [Recovered/Resolved]
  - Tremor [Not Recovered/Not Resolved]
